FAERS Safety Report 15692905 (Version 3)
Quarter: 2018Q4

REPORT INFORMATION
  Report Type: Report from Study
  Country: US (occurrence: US)
  Receive Date: 20181206
  Receipt Date: 20181218
  Transmission Date: 20190205
  Serious: Yes (Hospitalization)
  Sender: FDA-Public Use
  Company Number: US-ROCHE-2223328

PATIENT
  Sex: Female
  Weight: 72.64 kg

DRUGS (12)
  1. BUMEX [Concomitant]
     Active Substance: BUMETANIDE
     Route: 048
  2. SPIROLACTONE [Concomitant]
     Active Substance: SPIRONOLACTONE
     Route: 048
  3. SERTRALINE [Concomitant]
     Active Substance: SERTRALINE HYDROCHLORIDE
     Indication: ANXIETY
     Route: 048
  4. OCREVUS [Suspect]
     Active Substance: OCRELIZUMAB
     Dosage: SECOND SPLIT DOE
     Route: 065
     Dates: start: 20180104, end: 20180621
  5. TROSPIUM [Concomitant]
     Active Substance: TROSPIUM
     Indication: MUSCLE SPASMS
     Route: 048
  6. OXYBUTYNIN. [Concomitant]
     Active Substance: OXYBUTYNIN CHLORIDE
     Indication: MUSCLE SPASMS
     Route: 048
  7. OCREVUS [Suspect]
     Active Substance: OCRELIZUMAB
     Indication: PRIMARY PROGRESSIVE MULTIPLE SCLEROSIS
     Route: 042
     Dates: start: 20171221
  8. METFORMIN [Concomitant]
     Active Substance: METFORMIN HYDROCHLORIDE
     Indication: DIABETES MELLITUS
     Route: 048
  9. LEVOTHYROXIN [Concomitant]
     Active Substance: LEVOTHYROXINE
     Route: 048
  10. POTASSIUM CITRATE. [Concomitant]
     Active Substance: POTASSIUM CITRATE
     Route: 065
  11. OCREVUS [Suspect]
     Active Substance: OCRELIZUMAB
     Route: 065
     Dates: start: 20180625
  12. BACLOFEN. [Concomitant]
     Active Substance: BACLOFEN
     Route: 048

REACTIONS (8)
  - Urinary tract infection [Recovered/Resolved]
  - Urine odour abnormal [Recovered/Resolved]
  - Kidney infection [Recovered/Resolved]
  - Lung infection [Unknown]
  - Sepsis [Recovered/Resolved]
  - Dyspnoea [Unknown]
  - Nephrolithiasis [Recovered/Resolved]
  - Pyrexia [Recovered/Resolved]

NARRATIVE: CASE EVENT DATE: 2018
